FAERS Safety Report 15706543 (Version 2)
Quarter: 2018Q4

REPORT INFORMATION
  Report Type: Spontaneous
  Country: CZ (occurrence: CZ)
  Receive Date: 20181210
  Receipt Date: 20181221
  Transmission Date: 20190205
  Serious: Yes (Other)
  Sender: FDA-Public Use
  Company Number: CZ-SA-2018SA333734

PATIENT
  Age: 36 Year
  Sex: Female
  Weight: 70 kg

DRUGS (1)
  1. ZENARO [Suspect]
     Active Substance: LEVOCETIRIZINE
     Indication: HISTAMINE INTOLERANCE
     Dosage: 5 MG TABLET TWICE IN THE COURSE OF ONE WEEK
     Route: 060
     Dates: start: 20181109, end: 20181116

REACTIONS (7)
  - Paraesthesia [Recovered/Resolved]
  - Tongue discolouration [Recovered/Resolved]
  - Paraesthesia oral [Recovered/Resolved]
  - Product taste abnormal [Unknown]
  - Nausea [Recovered/Resolved]
  - Product quality issue [Unknown]
  - Product use issue [Unknown]

NARRATIVE: CASE EVENT DATE: 201811
